FAERS Safety Report 11212193 (Version 2)
Quarter: 2015Q2

REPORT INFORMATION
  Report Type: Spontaneous
  Country: US (occurrence: US)
  Receive Date: 20150623
  Receipt Date: 20150629
  Transmission Date: 20150821
  Serious: Yes (Other)
  Sender: FDA-Public Use
  Company Number: US-PFIZER INC-2015207722

PATIENT
  Age: 53 Year
  Sex: Female
  Weight: 109 kg

DRUGS (8)
  1. ZOLOFT [Suspect]
     Active Substance: SERTRALINE HYDROCHLORIDE
     Indication: DEPRESSION
     Dosage: UNK
  2. SERTRALINE HCL [Suspect]
     Active Substance: SERTRALINE HYDROCHLORIDE
     Indication: ANXIETY
     Dosage: 200 MG, DAILY
     Dates: start: 2010
  3. MYSOLINE [Concomitant]
     Active Substance: PRIMIDONE
     Indication: TREMOR
     Dosage: 50 MG, 1X/DAY
  4. INDERAL [Concomitant]
     Active Substance: PROPRANOLOL HYDROCHLORIDE
     Indication: FAMILIAL TREMOR
     Dosage: 20 MG, 1X/DAY
  5. ZOLOFT [Suspect]
     Active Substance: SERTRALINE HYDROCHLORIDE
     Dosage: UNK
  6. SERTRALINE HCL [Suspect]
     Active Substance: SERTRALINE HYDROCHLORIDE
     Indication: DEPRESSION
     Dosage: UNK
  7. LIPITOR [Concomitant]
     Active Substance: ATORVASTATIN CALCIUM
     Indication: BLOOD CHOLESTEROL ABNORMAL
     Dosage: 20 MG, 1X/DAY
  8. ZOLOFT [Suspect]
     Active Substance: SERTRALINE HYDROCHLORIDE
     Indication: ANXIETY
     Dosage: 200 MG, DAILY
     Dates: start: 1998, end: 2010

REACTIONS (1)
  - Wrist fracture [Unknown]

NARRATIVE: CASE EVENT DATE: 201305
